FAERS Safety Report 20044589 (Version 1)
Quarter: 2021Q4

REPORT INFORMATION
  Report Type: Spontaneous
  Country: DE (occurrence: DE)
  Receive Date: 20211108
  Receipt Date: 20211108
  Transmission Date: 20220303
  Serious: Yes (Hospitalization, Other)
  Sender: FDA-Public Use
  Company Number: DE-ADRED-06939-01

PATIENT
  Age: 86 Year
  Sex: Female
  Weight: 86 kg

DRUGS (12)
  1. RAMIPRIL [Suspect]
     Active Substance: RAMIPRIL
     Indication: Product used for unknown indication
     Dosage: 5 MG, 1-0-0-0
  2. TOREMIFENE [Suspect]
     Active Substance: TOREMIFENE
     Indication: Product used for unknown indication
     Dosage: 0.5 MG, 0.5-0-0.5-0
  3. CITALOPRAM [Concomitant]
     Active Substance: CITALOPRAM HYDROBROMIDE
     Dosage: 10 MILLIGRAM, QD, 1-0-0-0
  4. MIRTAZAPINE [Concomitant]
     Active Substance: MIRTAZAPINE
     Dosage: 30 MILLIGRAM, 0-0-0.5-0
  5. PREGABALIN [Concomitant]
     Active Substance: PREGABALIN
     Dosage: 75 MG, 2-1-0-0
  6. BISOPROLOL [Concomitant]
     Active Substance: BISOPROLOL
     Dosage: 2.5 MILLIGRAM, 1-0-0-0
  7. METAMIZOL                          /06276701/ [Concomitant]
     Dosage: 500 MILLIGRAM, 1-1-1-1
  8. APIXABAN [Concomitant]
     Active Substance: APIXABAN
     Dosage: 2.5 MILLIGRAM, BID
  9. PRAVASTATIN [Concomitant]
     Active Substance: PRAVASTATIN
     Dosage: 20 MG, 0-0-0.5-0
  10. POLYETHYLENE GLYCOLS [Concomitant]
     Active Substance: POLYETHYLENE GLYCOLS
     Dosage: 1-0-0-0
  11. HYDROMORPHONE [Concomitant]
     Active Substance: HYDROMORPHONE
     Dosage: 8 MG, 2-0-1.5-0
  12. FEBUXOSTAT [Concomitant]
     Active Substance: FEBUXOSTAT
     Dosage: 80 MG, 1-0-0-0

REACTIONS (9)
  - Atrial fibrillation [Unknown]
  - Pyrexia [Unknown]
  - General physical health deterioration [Unknown]
  - Fatigue [Unknown]
  - Erythema [Unknown]
  - Pain [Unknown]
  - Oedema peripheral [Unknown]
  - Dyspnoea [Unknown]
  - Peripheral swelling [Unknown]
